FAERS Safety Report 9850347 (Version 1)
Quarter: 2014Q1

REPORT INFORMATION
  Report Type: Spontaneous
  Country: IT (occurrence: IT)
  Receive Date: 20140128
  Receipt Date: 20140128
  Transmission Date: 20141002
  Serious: Yes (Hospitalization)
  Sender: FDA-Public Use
  Company Number: IT-BAYER-2014-013598

PATIENT
  Age: 37 Year
  Sex: Female

DRUGS (3)
  1. ACETYLSALICYLIC ACID({=100 MG) [Suspect]
     Indication: PROPHYLAXIS
  2. INSULIN [Concomitant]
     Indication: TYPE 1 DIABETES MELLITUS
  3. METHYLDOPA [Concomitant]
     Indication: HYPERTENSION

REACTIONS (3)
  - Proteinuria [None]
  - Premature labour [None]
  - Maternal exposure during pregnancy [None]
